FAERS Safety Report 8695093 (Version 2)
Quarter: 2013Q4

REPORT INFORMATION
  Report Type: Spontaneous
  Country: US (occurrence: US)
  Receive Date: 20120731
  Receipt Date: 20131107
  Transmission Date: 20140711
  Serious: Yes (Death, Hospitalization)
  Sender: FDA-Public Use
  Company Number: US-009507513-1207USA009963

PATIENT
  Age: 87 Year
  Sex: Female

DRUGS (6)
  1. ZOCOR [Suspect]
     Dosage: UNK
     Route: 048
  2. KENZEN [Interacting]
     Dosage: UNK
     Route: 048
  3. DANATROL [Interacting]
     Dosage: UNK
     Route: 048
  4. ALLOPURINOL [Concomitant]
     Dosage: UNK
     Route: 048
  5. TEMERIT [Concomitant]
  6. LASILIX [Suspect]
     Dosage: UNK

REACTIONS (3)
  - Drug interaction [Fatal]
  - Renal failure acute [Fatal]
  - Rhabdomyolysis [Fatal]
